FAERS Safety Report 6040564-8 (Version None)
Quarter: 2009Q1

REPORT INFORMATION
  Report Type: 
  Country: None (occurrence: None)
  Receive Date: 20090116
  Receipt Date: 20080404
  Transmission Date: 20090719
  Serious: No
  Sender: FDA-Public Use
  Company Number: US-BRISTOL-MYERS SQUIBB COMPANY-14139778

PATIENT
  Age: 66 Year
  Sex: Female
  Weight: 61 kg

DRUGS (8)
  1. ABILIFY [Suspect]
     Indication: BIPOLAR DISORDER
     Dates: start: 20080301
  2. TRICOR [Concomitant]
  3. LISINOPRIL [Concomitant]
  4. NABUMETONE [Concomitant]
  5. NAPROXEN [Concomitant]
  6. METFORMIN [Concomitant]
  7. EVISTA [Concomitant]
  8. SYNTHROID [Concomitant]

REACTIONS (2)
  - DISTURBANCE IN ATTENTION [None]
  - FRUSTRATION [None]
